FAERS Safety Report 4406505-1 (Version None)
Quarter: 2004Q3

REPORT INFORMATION
  Report Type: 
  Country: None (occurrence: None)
  Receive Date: 20040716
  Receipt Date: 20040706
  Transmission Date: 20050211
  Serious: Yes (Other)
  Sender: FDA-Public Use
  Company Number: 2004214642CA

PATIENT
  Age: 24 Year
  Sex: Female
  Weight: 64.4 kg

DRUGS (2)
  1. DEPO-PROVERA [Suspect]
     Indication: CONTRACEPTION
     Dosage: SEE IMAGE
     Route: 030
     Dates: start: 20031001, end: 20031001
  2. DEPO-PROVERA [Suspect]
     Indication: CONTRACEPTION
     Dosage: SEE IMAGE
     Route: 030
     Dates: start: 20040423, end: 20040423

REACTIONS (16)
  - ACTIVITIES OF DAILY LIVING IMPAIRED [None]
  - AMENORRHOEA [None]
  - ANHEDONIA [None]
  - DEPRESSION [None]
  - DIZZINESS [None]
  - DYSPNOEA [None]
  - FATIGUE [None]
  - HEADACHE [None]
  - HEART RATE INCREASED [None]
  - HYPERHIDROSIS [None]
  - IMPAIRED DRIVING ABILITY [None]
  - IMPAIRED SELF-CARE [None]
  - PALPITATIONS [None]
  - PANIC ATTACK [None]
  - VERTIGO [None]
  - WEIGHT INCREASED [None]
